FAERS Safety Report 25129845 (Version 1)
Quarter: 2025Q1

REPORT INFORMATION
  Report Type: Spontaneous
  Country: DE (occurrence: DE)
  Receive Date: 20250327
  Receipt Date: 20250327
  Transmission Date: 20250409
  Serious: Yes (Death, Other)
  Sender: AMGEN
  Company Number: DE-AMGEN-DEUSP2025053981

PATIENT
  Age: 32 Week
  Sex: Female
  Weight: 1.24 kg

DRUGS (11)
  1. PREDNISONE [Suspect]
     Active Substance: PREDNISONE
     Indication: Mevalonate kinase deficiency
     Dosage: 2 MILLIGRAM/KILOGRAM, QD
     Route: 065
  2. AMPICILLIN [Concomitant]
     Active Substance: AMPICILLIN
  3. GENTAMICIN [Concomitant]
     Active Substance: GENTAMICIN
  4. URSODIOL [Concomitant]
     Active Substance: URSODIOL
  5. ENOXAPARIN [Concomitant]
     Active Substance: ENOXAPARIN
  6. ANTITHROMBIN III HUMAN [Concomitant]
     Active Substance: ANTITHROMBIN III HUMAN
  7. CEFOTAXIME [Concomitant]
     Active Substance: CEFOTAXIME SODIUM
  8. VANCOMYCIN [Concomitant]
     Active Substance: VANCOMYCIN
  9. IMIPENEM [Concomitant]
     Active Substance: IMIPENEM
  10. ANAKINRA [Concomitant]
     Active Substance: ANAKINRA
     Dosage: 2 MILLIGRAM/KILOGRAM, QD
  11. ANAKINRA [Concomitant]
     Active Substance: ANAKINRA
     Dosage: 10 MILLIGRAM/KILOGRAM, QD

REACTIONS (9)
  - Cardiopulmonary failure [Fatal]
  - Lactic acidosis [Unknown]
  - Respiratory failure [Unknown]
  - Intestinal obstruction [Unknown]
  - Hepatic function abnormal [Unknown]
  - C-reactive protein abnormal [Unknown]
  - Mevalonic aciduria [Unknown]
  - Poor feeding infant [Unknown]
  - Off label use [Unknown]
